FAERS Safety Report 24047964 (Version 1)
Quarter: 2024Q3

REPORT INFORMATION
  Report Type: Spontaneous
  Country: US (occurrence: US)
  Receive Date: 20240703
  Receipt Date: 20240703
  Transmission Date: 20241016
  Serious: No
  Sender: BIOMARIN
  Company Number: US-BIOMARINAP-US-2024-158878

PATIENT

DRUGS (1)
  1. ROCTAVIAN [Suspect]
     Active Substance: VALOCTOCOGENE ROXAPARVOVEC-RVOX
     Indication: Factor VIII deficiency
     Dosage: UNK, SINGLE
     Route: 042
     Dates: start: 20240625

REACTIONS (2)
  - Migraine [Recovering/Resolving]
  - Nausea [Recovering/Resolving]

NARRATIVE: CASE EVENT DATE: 20240626
